FAERS Safety Report 7091621-9 (Version None)
Quarter: 2010Q4

REPORT INFORMATION
  Report Type: 
  Country: None (occurrence: None)
  Receive Date: 20101109
  Receipt Date: 20071024
  Transmission Date: 20110411
  Serious: Yes (Other)
  Sender: FDA-Public Use
  Company Number: PHEH2007US16474

PATIENT
  Sex: Male

DRUGS (1)
  1. AREDIA [Suspect]
     Indication: SPINAL FRACTURE
     Dosage: UNK
     Route: 042
     Dates: start: 19990101, end: 20030101

REACTIONS (8)
  - HERPES ZOSTER [None]
  - INTERVERTEBRAL DISC DEGENERATION [None]
  - LIPOMA [None]
  - LUMBAR SPINAL STENOSIS [None]
  - PAIN IN EXTREMITY [None]
  - PERIPHERAL COLDNESS [None]
  - SPINAL COMPRESSION FRACTURE [None]
  - SPINAL DEFORMITY [None]
